FAERS Safety Report 16723060 (Version 3)
Quarter: 2019Q3

REPORT INFORMATION
  Report Type: Spontaneous
  Country: CH (occurrence: CH)
  Receive Date: 20190821
  Receipt Date: 20190927
  Transmission Date: 20191005
  Serious: Yes (Other)
  Sender: FDA-Public Use
  Company Number: CH-REGENERON PHARMACEUTICALS, INC.-2019-48437

PATIENT

DRUGS (2)
  1. EYLEA [Suspect]
     Active Substance: AFLIBERCEPT
     Indication: AGE-RELATED MACULAR DEGENERATION
     Dosage: DOSE AND FREQUENCY UNKNOWN; TREATED EYE UNKNOWN;
     Dates: start: 20180713
  2. EYLEA [Suspect]
     Active Substance: AFLIBERCEPT
     Dosage: DOSE AND FREQUENCY UNKNOWN; TREATED EYE UNKNOWN; TOTAL OF 9 INJECTIONS

REACTIONS (2)
  - Status epilepticus [Unknown]
  - Status epilepticus [Unknown]

NARRATIVE: CASE EVENT DATE: 20190604
